FAERS Safety Report 5154707-1 (Version None)
Quarter: 2006Q4

REPORT INFORMATION
  Report Type: 
  Country: None (occurrence: None)
  Receive Date: 20061116
  Receipt Date: 20061116
  Transmission Date: 20070319
  Serious: Yes (Life-Threatening)
  Sender: FDA-Public Use
  Company Number: None

PATIENT
  Age: 56 Year
  Sex: Female
  Weight: 87 kg

DRUGS (1)
  1. ADENOSINE [Suspect]
     Indication: CARDIAC STRESS TEST
     Dosage: 0.14 MG/MIN OVER 6 MIN IV
     Route: 042
     Dates: start: 20060601

REACTIONS (4)
  - APNOEA [None]
  - BRADYCARDIA [None]
  - CARDIO-RESPIRATORY ARREST [None]
  - INFUSION RELATED REACTION [None]
